FAERS Safety Report 5255190-8 (Version None)
Quarter: 2007Q1

REPORT INFORMATION
  Report Type: 
  Country: None (occurrence: None)
  Receive Date: 20070305
  Receipt Date: 20070220
  Transmission Date: 20070707
  Serious: Yes (Other)
  Sender: FDA-Public Use
  Company Number: PHEH2007US02287

PATIENT
  Age: 86 Year
  Sex: Male

DRUGS (2)
  1. RITALIN [Suspect]
  2. ANTIGLAUCOMA PREPARATIONS AND MIOTICS [Suspect]

REACTIONS (1)
  - DRUG INTERACTION [None]
